FAERS Safety Report 4277423-7 (Version None)
Quarter: 2004Q1

REPORT INFORMATION
  Report Type: 
  Country: None (occurrence: None)
  Receive Date: 20040122
  Receipt Date: 20040109
  Transmission Date: 20041129
  Serious: Yes (Hospitalization, Other)
  Sender: FDA-Public Use
  Company Number: FR-GLAXOSMITHKLINE-B0319890A

PATIENT
  Age: 5 Day
  Sex: Female
  Weight: 2.8 kg

DRUGS (7)
  1. RETROVIR [Suspect]
     Indication: ANTIVIRAL PROPHYLAXIS
     Route: 048
     Dates: start: 20031030, end: 20031113
  2. TRIZIVIR [Suspect]
     Indication: HIV INFECTION
     Dates: start: 20010101, end: 20030516
  3. COMBIVIR [Suspect]
     Indication: HIV INFECTION
     Dates: start: 20030912
  4. VIRACEPT [Concomitant]
     Indication: HIV INFECTION
     Dates: start: 20010101, end: 20030516
  5. FOLINIC ACID [Concomitant]
  6. IRON [Concomitant]
  7. VIRACEPT [Concomitant]
     Dates: start: 20030912

REACTIONS (10)
  - ACIDOSIS [None]
  - BLOOD CREATINE PHOSPHOKINASE INCREASED [None]
  - BRADYCARDIA FOETAL [None]
  - CAESAREAN SECTION [None]
  - DRUG EXPOSURE DURING PREGNANCY [None]
  - FOETAL DISTRESS SYNDROME [None]
  - HAEMOLYTIC ANAEMIA [None]
  - HYPERLACTACIDAEMIA [None]
  - NEONATAL DISORDER [None]
  - SMALL FOR DATES BABY [None]
